FAERS Safety Report 5098059-4 (Version None)
Quarter: 2006Q3

REPORT INFORMATION
  Report Type: 
  Country: None (occurrence: None)
  Receive Date: 20060906
  Receipt Date: 20060804
  Transmission Date: 20061208
  Serious: Yes (Hospitalization)
  Sender: FDA-Public Use
  Company Number: SEWYE705015AUG06

PATIENT
  Sex: Male

DRUGS (4)
  1. ENBREL [Suspect]
     Indication: PSORIASIS
     Dosage: 50 MG *2 /WEEK
     Route: 058
     Dates: start: 20060616, end: 20060724
  2. NORVASC [Concomitant]
     Dosage: 5 MG*1
  3. COZAAR [Concomitant]
     Dosage: 1*1
  4. SANDIMMUNE [Concomitant]
     Dosage: 50 MG*2

REACTIONS (2)
  - CONDITION AGGRAVATED [None]
  - PSORIASIS [None]
